FAERS Safety Report 6145125-8 (Version None)
Quarter: 2009Q2

REPORT INFORMATION
  Report Type: 
  Country: None (occurrence: None)
  Receive Date: 20090402
  Receipt Date: 20090402
  Transmission Date: 20091009
  Serious: Yes (Life-Threatening)
  Sender: FDA-Public Use
  Company Number: None

PATIENT
  Age: 16 Month
  Sex: Female
  Weight: 8.4 kg

DRUGS (1)
  1. EPINEPHRINE [Suspect]
     Indication: HEART TRANSPLANT
     Dosage: 2.52 MG CONTINOUS INFUSIO IV DRIP
     Route: 041
     Dates: start: 20090330, end: 20090330

REACTIONS (1)
  - HYPOTENSION [None]
